FAERS Safety Report 18347435 (Version 4)
Quarter: 2021Q2

REPORT INFORMATION
  Report Type: Report from Study
  Country: CA (occurrence: CA)
  Receive Date: 20201006
  Receipt Date: 20210627
  Transmission Date: 20210717
  Serious: Yes (Other)
  Sender: FDA-Public Use
  Company Number: PHHY2018CA194825

PATIENT
  Age: 54 Year
  Sex: Male

DRUGS (9)
  1. AMITRIPTYLINE [Concomitant]
     Active Substance: AMITRIPTYLINE
     Indication: PRODUCT USED FOR UNKNOWN INDICATION
     Dosage: 2 DF, QHS (STRENGTH 10 MG)
     Route: 065
     Dates: start: 201909, end: 2019
  2. SANDOSTATIN LAR DEPOT [Suspect]
     Active Substance: OCTREOTIDE ACETATE
     Dosage: 30 MG, QMO
     Route: 030
     Dates: start: 202009
  3. SANDOSTATIN LAR DEPOT [Suspect]
     Active Substance: OCTREOTIDE ACETATE
     Indication: CARCINOID TUMOUR
     Dosage: 20 MG, QMO
     Route: 030
     Dates: start: 20181220
  4. SANDOSTATIN LAR DEPOT [Suspect]
     Active Substance: OCTREOTIDE ACETATE
     Indication: NEUROENDOCRINE CARCINOMA
     Dosage: 20 MG, QMO
     Route: 030
     Dates: start: 20181122
  5. AMITRIPTYLINE [Concomitant]
     Active Substance: AMITRIPTYLINE
     Dosage: 2 DF, QHS (STRENGTH 10MG,)
     Route: 065
     Dates: start: 2019, end: 2019
  6. VITAMIN D1 [Concomitant]
     Active Substance: VITAMIN D NOS
     Indication: PRODUCT USED FOR UNKNOWN INDICATION
     Dosage: 1 DF, QD
     Route: 065
     Dates: start: 20200309
  7. SANDOSTATIN LAR DEPOT [Suspect]
     Active Substance: OCTREOTIDE ACETATE
     Dosage: 30 MG, Q4W
     Route: 030
     Dates: start: 20181122
  8. SANDOSTATIN LAR DEPOT [Suspect]
     Active Substance: OCTREOTIDE ACETATE
     Dosage: 30 MG, QMO
     Route: 030
     Dates: start: 20190314
  9. AMITRIPTYLINE [Concomitant]
     Active Substance: AMITRIPTYLINE
     Dosage: UNK UNK, QHS (STRENGTH 35)
     Route: 065
     Dates: start: 20191003

REACTIONS (27)
  - Dizziness [Unknown]
  - Haematochezia [Not Recovered/Not Resolved]
  - Diarrhoea [Not Recovered/Not Resolved]
  - Blood pressure decreased [Unknown]
  - Abdominal pain [Unknown]
  - Hot flush [Unknown]
  - Faeces discoloured [Unknown]
  - Blood glucose increased [Unknown]
  - Product prescribing issue [Unknown]
  - Blood pressure systolic increased [Unknown]
  - Back pain [Recovered/Resolved]
  - Fatigue [Unknown]
  - Back pain [Unknown]
  - Pancreatic carcinoma [Unknown]
  - Tremor [Unknown]
  - Dysgraphia [Unknown]
  - Anxiety [Unknown]
  - Decreased appetite [Unknown]
  - Headache [Recovered/Resolved]
  - Hyperhidrosis [Recovering/Resolving]
  - Body temperature decreased [Unknown]
  - Abdominal pain [Recovered/Resolved]
  - Hypoaesthesia [Unknown]
  - Spinal pain [Unknown]
  - Musculoskeletal chest pain [Unknown]
  - Asthenia [Unknown]
  - Injection site discomfort [Unknown]

NARRATIVE: CASE EVENT DATE: 20181122
